FAERS Safety Report 25028789 (Version 2)
Quarter: 2025Q1

REPORT INFORMATION
  Report Type: Spontaneous
  Country: JP (occurrence: JP)
  Receive Date: 20250302
  Receipt Date: 20250315
  Transmission Date: 20250408
  Serious: Yes (Hospitalization)
  Sender: JOHNSON AND JOHNSON
  Company Number: JP-NShinyaku-EVA20250282201001307081

PATIENT
  Age: 7 Decade

DRUGS (1)
  1. UPTRAVI [Suspect]
     Active Substance: SELEXIPAG
     Indication: Pulmonary arterial hypertension
     Dosage: UNKNOWN
     Route: 048

REACTIONS (1)
  - Infection [Recovered/Resolved]
